FAERS Safety Report 12075801 (Version 4)
Quarter: 2016Q2

REPORT INFORMATION
  Report Type: Report from Study
  Country: ZA (occurrence: ZA)
  Receive Date: 20160214
  Receipt Date: 20160615
  Transmission Date: 20160815
  Serious: Yes (Hospitalization)
  Sender: FDA-Public Use
  Company Number: PHHY2015ZA154719

PATIENT
  Sex: Female
  Weight: 91 kg

DRUGS (7)
  1. SANDOSTATIN [Suspect]
     Active Substance: OCTREOTIDE ACETATE
     Dosage: 0.1 MG, 3 TO 5 TIMES A DAY
     Route: 058
  2. SANDOSTATIN [Suspect]
     Active Substance: OCTREOTIDE ACETATE
     Indication: ACROMEGALY
     Dosage: 0.05 MG, UNK (2 CYCLES)
     Route: 058
     Dates: start: 201509
  3. SANDOSTATIN LAR DEPOT [Suspect]
     Active Substance: OCTREOTIDE ACETATE
     Indication: ACROMEGALY
     Dosage: 20 MG, UNK
     Route: 065
     Dates: start: 201601
  4. SANDOSTATIN LAR DEPOT [Suspect]
     Active Substance: OCTREOTIDE ACETATE
     Indication: GROWTH HORMONE-PRODUCING PITUITARY TUMOUR
     Dosage: 30 MG, QMO
     Route: 065
  5. BETANOID [Concomitant]
     Indication: HEADACHE
     Route: 065
  6. SANDOSTATIN [Suspect]
     Active Substance: OCTREOTIDE ACETATE
     Indication: GROWTH HORMONE-PRODUCING PITUITARY TUMOUR
     Dosage: 0.1 MG, UNK (2 CYCLES)
     Route: 058
  7. SANDOSTATIN LAR DEPOT [Suspect]
     Active Substance: OCTREOTIDE ACETATE
     Dosage: 30 MG, BI-MONTHLY
     Route: 065

REACTIONS (5)
  - Diplopia [Recovering/Resolving]
  - Liver disorder [Unknown]
  - Headache [Not Recovered/Not Resolved]
  - Inappropriate schedule of drug administration [Unknown]
  - No therapeutic response [Unknown]
